FAERS Safety Report 9332847 (Version 1)
Quarter: 2013Q2

REPORT INFORMATION
  Report Type: Spontaneous
  Country: US (occurrence: US)
  Receive Date: 20130606
  Receipt Date: 20130606
  Transmission Date: 20140414
  Serious: Yes (Other)
  Sender: FDA-Public Use
  Company Number: US-PFIZER INC-2013170232

PATIENT
  Age: 53 Year
  Sex: Female
  Weight: 48.53 kg

DRUGS (3)
  1. CHANTIX [Suspect]
     Indication: SMOKING CESSATION THERAPY
     Dosage: 0.5 MG, 1X/DAY
     Route: 048
     Dates: start: 201302, end: 201303
  2. CELEXA [Concomitant]
     Indication: RAYNAUD^S PHENOMENON
     Dosage: 40 MG, 1X/DAY
  3. NITROGLYCERIN [Concomitant]
     Dosage: 2.5 MG, UNK

REACTIONS (2)
  - Peripheral arterial occlusive disease [Unknown]
  - Blood cholesterol increased [Unknown]
